FAERS Safety Report 4726206-X (Version None)
Quarter: 2005Q3

REPORT INFORMATION
  Report Type: 
  Country: None (occurrence: None)
  Receive Date: 20050725
  Receipt Date: 20050517
  Transmission Date: 20060218
  Serious: Yes (Death)
  Sender: FDA-Public Use
  Company Number: 2005078887

PATIENT
  Sex: Male

DRUGS (1)
  1. CARDURA XL [Suspect]
     Indication: BENIGN PROSTATIC HYPERPLASIA
     Dosage: 4 MG (4 MG, SINGLE, INTERVAL: EVERDAY), ORAL
     Route: 048
     Dates: start: 20020101

REACTIONS (1)
  - LUNG DISORDER [None]
